FAERS Safety Report 12928439 (Version 1)
Quarter: 2016Q4

REPORT INFORMATION
  Report Type: Report from Study
  Country: None (occurrence: CA)
  Receive Date: 20161110
  Receipt Date: 20161110
  Transmission Date: 20170207
  Serious: Yes (Hospitalization, Other)
  Sender: FDA-Public Use
  Company Number: CA-ABBVIE-15K-028-1346028-00

PATIENT
  Age: 55 Year
  Sex: Male
  Weight: 65 kg

DRUGS (5)
  1. HUMIRA [Suspect]
     Active Substance: ADALIMUMAB
     Indication: ANKYLOSING SPONDYLITIS
     Route: 058
     Dates: start: 20130109
  2. HUMIRA [Suspect]
     Active Substance: ADALIMUMAB
     Route: 058
     Dates: start: 20161005
  3. PREDNISONE. [Concomitant]
     Active Substance: PREDNISONE
     Indication: POLYCHONDRITIS
  4. DICLOFENAC [Concomitant]
     Active Substance: DICLOFENAC
     Indication: ANKYLOSING SPONDYLITIS
  5. HUMIRA [Suspect]
     Active Substance: ADALIMUMAB
     Route: 058

REACTIONS (11)
  - Device occlusion [Unknown]
  - Excessive granulation tissue [Unknown]
  - Pre-existing condition improved [Unknown]
  - Polychondritis [Not Recovered/Not Resolved]
  - Postoperative wound infection [Not Recovered/Not Resolved]
  - Therapeutic response unexpected [Unknown]
  - Bacteraemia [Not Recovered/Not Resolved]
  - Bronchitis [Not Recovered/Not Resolved]
  - Pneumonia [Not Recovered/Not Resolved]
  - Procedural complication [Recovered/Resolved with Sequelae]
  - Klebsiella infection [Not Recovered/Not Resolved]

NARRATIVE: CASE EVENT DATE: 2016
